FAERS Safety Report 14683184 (Version 1)
Quarter: 2018Q1

REPORT INFORMATION
  Report Type: Spontaneous
  Country: US (occurrence: US)
  Receive Date: 20180327
  Receipt Date: 20180327
  Transmission Date: 20180509
  Serious: Yes (Life-Threatening, Hospitalization, Other)
  Sender: FDA-Public Use
  Company Number: US-ASTRAZENECA-2018SE35493

PATIENT
  Age: 782 Month
  Sex: Male
  Weight: 83.9 kg

DRUGS (3)
  1. BRILINTA [Suspect]
     Active Substance: TICAGRELOR
     Indication: MYOCARDIAL INFARCTION
     Route: 048
     Dates: start: 201309, end: 201803
  2. APSIRIN [Concomitant]
     Indication: PROPHYLAXIS
     Route: 048
  3. BRILINTA [Suspect]
     Active Substance: TICAGRELOR
     Indication: STENT PLACEMENT
     Route: 048
     Dates: start: 201309, end: 201803

REACTIONS (9)
  - Vascular stent thrombosis [Unknown]
  - Off label use [Unknown]
  - Product use issue [Unknown]
  - Skin discolouration [Unknown]
  - Intervertebral disc protrusion [Unknown]
  - Contusion [Unknown]
  - Myocardial infarction [Unknown]
  - Haemorrhagic diathesis [Unknown]
  - Complication associated with device [Unknown]

NARRATIVE: CASE EVENT DATE: 201309
